FAERS Safety Report 8502480-9 (Version None)
Quarter: 2012Q3

REPORT INFORMATION
  Report Type: 
  Country: None (occurrence: None)
  Receive Date: 20120711
  Receipt Date: 20120702
  Transmission Date: 20120928
  Serious: Yes (Other)
  Sender: FDA-Public Use
  Company Number: US-BAYER-201040358NA

PATIENT
  Age: 50 Year
  Sex: Female
  Weight: 112 kg

DRUGS (25)
  1. ZESTRIL [Concomitant]
     Route: 048
  2. SEVOFLURANE [Concomitant]
     Dosage: UNK
     Dates: start: 20080115
  3. DOPAMINE [DOPAMINE HYDROCHLORIDE,GLUCOSE] [Concomitant]
  4. ASPIRIN [Concomitant]
     Dosage: 81 MG, QOD
     Route: 048
  5. LOPRESSOR [Concomitant]
     Dosage: 100 MG, BID
     Route: 048
  6. LANTUS [Concomitant]
  7. VANCOMYCIN [Concomitant]
     Dosage: 1 G, UNK
     Route: 042
     Dates: start: 20080115
  8. ZETIA [Concomitant]
     Dosage: 10 MG, DAILY
     Route: 048
  9. REGLAN [Concomitant]
  10. AMARYL [Concomitant]
  11. ROCURONIUM BROMIDE [Concomitant]
  12. EPINEPHRINE [Concomitant]
  13. SOLU-MEDROL [Concomitant]
     Dosage: 2 G, UNK
     Route: 042
     Dates: start: 20080115
  14. TRASYLOL [Suspect]
     Indication: PRODUCT USED FOR UNKNOWN INDICATION
     Dosage: UNK
     Route: 042
     Dates: start: 20080115
  15. INSULIN [Concomitant]
     Dosage: 2 U, UNK
     Route: 042
     Dates: start: 20080115
  16. ZAROXOLYN [Concomitant]
     Route: 048
  17. PLAVIX [Concomitant]
     Dosage: 75 MG, QOD
     Route: 048
  18. NEPHROVITE [VIT C,VIT H,B5,B12,B9,B3,B6,B2,B1 HCL] [Concomitant]
  19. AMIDATE [Concomitant]
     Dosage: 36 MG, UNK
     Route: 048
     Dates: start: 20080115
  20. ISORDIL [Concomitant]
     Dosage: 20 MG, BID
     Route: 048
  21. LASIX [Concomitant]
     Dosage: 40 MG, QOD
     Route: 048
  22. LIPITOR [Concomitant]
     Dosage: 80 MG, QOD
     Route: 048
  23. NOVOLIN R [Concomitant]
  24. VERSED [Concomitant]
     Dosage: 5 MG, UNK
  25. FENTANYL [Concomitant]

REACTIONS (13)
  - RENAL INJURY [None]
  - MULTI-ORGAN FAILURE [None]
  - INJURY [None]
  - ANXIETY [None]
  - FEAR [None]
  - NERVOUSNESS [None]
  - DEPRESSION [None]
  - PAIN [None]
  - EMOTIONAL DISTRESS [None]
  - RENAL FAILURE [None]
  - UNEVALUABLE EVENT [None]
  - ANHEDONIA [None]
  - FEAR OF DEATH [None]
